FAERS Safety Report 10378381 (Version 1)
Quarter: 2014Q1

REPORT INFORMATION
  Report Type: Spontaneous
  Country: US (occurrence: None)
  Receive Date: 20140306
  Receipt Date: 20140306
  Transmission Date: 20141002
  Serious: Yes (Other)
  Sender: FDA-Public Use
  Company Number: 163-21880-13014368

PATIENT
  Age: 72 Year
  Sex: Female

DRUGS (9)
  1. REVLIMID (LENALIDOMIDE) (CAPSULES) [Suspect]
     Indication: PLASMA CELL MYELOMA
     Dosage: 15 MG, 21 IN 21 D, PO
     Route: 048
     Dates: start: 20120921
  2. ACETAMINOPHEN EXTRA STRENGTH (PARACETAMOL) [Concomitant]
  3. ACYCLOVIR [Concomitant]
  4. ASPIRIN (ACETYLSALICYLIC ACID) [Concomitant]
  5. CLARITIN (LORATADINE) [Concomitant]
  6. DEXAMETHASONE [Concomitant]
  7. GABAPENTIN [Concomitant]
  8. HYDROXYCHLOROQUINE SULFATE [Concomitant]
  9. LORTAB (VICODIN) [Concomitant]

REACTIONS (1)
  - Plasma cell myeloma [None]
